FAERS Safety Report 10718219 (Version 2)
Quarter: 2015Q1

REPORT INFORMATION
  Report Type: Spontaneous
  Country: US (occurrence: US)
  Receive Date: 20150118
  Receipt Date: 20150202
  Transmission Date: 20150721
  Serious: No
  Sender: FDA-Public Use
  Company Number: US-ASTRAZENECA-2014SE98728

PATIENT
  Age: 65 Year
  Sex: Male
  Weight: 62.6 kg

DRUGS (4)
  1. ATORVASTATIN [Concomitant]
     Active Substance: ATORVASTATIN
  2. SYMBICORT [Suspect]
     Active Substance: BUDESONIDE\FORMOTEROL FUMARATE DIHYDRATE
     Indication: CHRONIC OBSTRUCTIVE PULMONARY DISEASE
     Dosage: 160/4.5 MCG 2 PUFFS, TWO TIMES A DAY
     Route: 055
     Dates: start: 2008
  3. ETODOLAC. [Concomitant]
     Active Substance: ETODOLAC
  4. HYDROCHLORTHIAZIDE [Concomitant]
     Active Substance: HYDROCHLOROTHIAZIDE

REACTIONS (4)
  - Drug dose omission [Unknown]
  - Device misuse [Unknown]
  - Spondylitis [Unknown]
  - Nocturnal dyspnoea [Unknown]

NARRATIVE: CASE EVENT DATE: 2013
